FAERS Safety Report 16755710 (Version 1)
Quarter: 2019Q3

REPORT INFORMATION
  Report Type: Spontaneous
  Country: US (occurrence: US)
  Receive Date: 20190829
  Receipt Date: 20190829
  Transmission Date: 20191005
  Serious: No
  Sender: FDA-Public Use
  Company Number: US-TEVA-2019-US-1098616

PATIENT
  Sex: Female

DRUGS (1)
  1. ESTRADIOL. [Suspect]
     Active Substance: ESTRADIOL
     Indication: VULVOVAGINAL DRYNESS
     Dates: start: 20190819, end: 20190820

REACTIONS (3)
  - Blood pressure systolic increased [Unknown]
  - Vaginal haemorrhage [Recovering/Resolving]
  - Vulvovaginal discomfort [Unknown]

NARRATIVE: CASE EVENT DATE: 20190819
